FAERS Safety Report 15698916 (Version 3)
Quarter: 2019Q2

REPORT INFORMATION
  Report Type: Spontaneous
  Country: US (occurrence: US)
  Receive Date: 20181207
  Receipt Date: 20190603
  Transmission Date: 20190711
  Serious: No
  Sender: FDA-Public Use
  Company Number: US-PFIZER INC-2018500395

PATIENT
  Age: 10 Year
  Sex: Female
  Weight: 31.48 kg

DRUGS (6)
  1. AMITRIPTYLINE [Concomitant]
     Active Substance: AMITRIPTYLINE
     Indication: MIGRAINE
     Dosage: 10 MG, 1X/DAY (AT NIGHT)
     Route: 048
  2. ADZENYS ER [Concomitant]
     Active Substance: AMPHETAMINE
     Indication: ATTENTION DEFICIT/HYPERACTIVITY DISORDER
     Dosage: 3.5 MG, 1X/DAY
  3. GENOTROPIN [Suspect]
     Active Substance: SOMATROPIN
     Dosage: 1.3 MG, 6 DAYS IN A WEEK
  4. GENOTROPIN [Suspect]
     Active Substance: SOMATROPIN
     Dosage: 1.5 MG, 6 DAYS A WEEK
  5. GENOTROPIN [Suspect]
     Active Substance: SOMATROPIN
     Indication: TURNER^S SYNDROME
     Dosage: 1.3 MG, DAILY
  6. GENOTROPIN [Suspect]
     Active Substance: SOMATROPIN
     Dosage: UNK

REACTIONS (5)
  - Drug dose omission by device [Unknown]
  - Arthralgia [Recovered/Resolved]
  - Device issue [Unknown]
  - Headache [Unknown]
  - Device breakage [Unknown]

NARRATIVE: CASE EVENT DATE: 20180927
